FAERS Safety Report 19064086 (Version 1)
Quarter: 2021Q1

REPORT INFORMATION
  Report Type: Spontaneous
  Country: GB (occurrence: GB)
  Receive Date: 20210326
  Receipt Date: 20210326
  Transmission Date: 20210420
  Serious: Yes (Other)
  Sender: FDA-Public Use
  Company Number: GB-AMERICAN REGENT INC-2021000764

PATIENT
  Age: 32 Year
  Sex: Female
  Weight: 91.3 kg

DRUGS (2)
  1. FERROUS FUMARATE [Concomitant]
     Active Substance: FERROUS FUMARATE
     Indication: ILL-DEFINED DISORDER
     Dosage: UNK
     Route: 065
  2. FERINJECT [Suspect]
     Active Substance: FERRIC CARBOXYMALTOSE
     Indication: IRON DEFICIENCY ANAEMIA
     Dosage: 1000 MG
     Route: 042
     Dates: start: 20210315, end: 20210315

REACTIONS (6)
  - Maternal exposure during pregnancy [Unknown]
  - Bradycardia foetal [Recovered/Resolved]
  - Myalgia [Recovered/Resolved]
  - Bronchospasm [Recovered/Resolved]
  - Tachycardia [Unknown]
  - Back pain [Recovered/Resolved]

NARRATIVE: CASE EVENT DATE: 20210315
